FAERS Safety Report 9404292 (Version 1)
Quarter: 2013Q3

REPORT INFORMATION
  Report Type: Spontaneous
  Country: US (occurrence: None)
  Receive Date: 20130711
  Receipt Date: 20130711
  Transmission Date: 20140515
  Serious: Yes (Hospitalization, Other)
  Sender: FDA-Public Use
  Company Number: 1786461

PATIENT
  Age: 60 Year
  Sex: Male
  Weight: 59.5 kg

DRUGS (6)
  1. NIPENT [Suspect]
     Indication: CHRONIC LYMPHOCYTIC LEUKAEMIA
     Dosage: INTRAVENOUS (NOT OTHERWISE SPECIFIED)?
     Route: 042
     Dates: start: 20120416, end: 20120904
  2. (CYCLOPHOSPHAMIDE) [Suspect]
     Indication: CHRONIC LYMPHOCYTIC LEUKAEMIA
     Dosage: INTRAVENOUS (NOT OTHERWISE SPECIFIED)
     Dates: start: 20120416, end: 20120904
  3. RITUXIMAB [Suspect]
     Indication: CHRONIC LYMPHOCYTIC LEUKAEMIA
     Dosage: INTRAVENOUS (NOT OTHERWISE SPECIFIED)
     Dates: start: 20120416, end: 20120904
  4. ALEMTUZUMAB [Suspect]
     Indication: CHRONIC LYMPHOCYTIC LEUKAEMIA
     Route: 058
     Dates: start: 20121022, end: 20130222
  5. (VORICONAZOLE) [Suspect]
  6. AVELOX [Suspect]
     Dates: start: 20130529

REACTIONS (7)
  - Lung infection [None]
  - Febrile neutropenia [None]
  - Weight decreased [None]
  - Decreased appetite [None]
  - Sinusitis [None]
  - Hyponatraemia [None]
  - Anaemia [None]
